FAERS Safety Report 5530643-3 (Version None)
Quarter: 2007Q4

REPORT INFORMATION
  Report Type: 
  Country: None (occurrence: None)
  Receive Date: 20071130
  Receipt Date: 20071129
  Transmission Date: 20080405
  Serious: Yes (Other)
  Sender: FDA-Public Use
  Company Number: B0497149A

PATIENT
  Sex: Male

DRUGS (5)
  1. FLIXOTIDE ACCUHALER [Suspect]
     Indication: ASTHMA
     Dosage: 500MCG TWICE PER DAY
     Route: 055
  2. VIAGRA [Concomitant]
  3. LIPITOR [Concomitant]
  4. DIAMICRON [Concomitant]
  5. ATACAND [Concomitant]

REACTIONS (2)
  - DRUG INEFFECTIVE [None]
  - PHARMACEUTICAL PRODUCT COMPLAINT [None]
